FAERS Safety Report 8022288-0 (Version None)
Quarter: 2012Q1

REPORT INFORMATION
  Report Type: 
  Country: None (occurrence: None)
  Receive Date: 20120104
  Receipt Date: 20111229
  Transmission Date: 20120608
  Serious: Yes (Other)
  Sender: FDA-Public Use
  Company Number: PHHY2011HR113282

PATIENT
  Age: 78 Year
  Sex: Female

DRUGS (2)
  1. BONEFOS [Concomitant]
     Indication: OSTEOLYSIS
     Dosage: 4 DF, QD
  2. FEMARA [Suspect]
     Indication: BREAST CANCER
     Dosage: 2.5 MG, QD
     Dates: start: 20090101

REACTIONS (9)
  - HEADACHE [None]
  - JOINT SWELLING [None]
  - DEPRESSION [None]
  - VISUAL IMPAIRMENT [None]
  - BONE DISORDER [None]
  - NAUSEA [None]
  - HOT FLUSH [None]
  - PRURITUS GENERALISED [None]
  - DIZZINESS [None]
